FAERS Safety Report 16008484 (Version 1)
Quarter: 2019Q1

REPORT INFORMATION
  Report Type: Spontaneous
  Country: NO (occurrence: NO)
  Receive Date: 20190225
  Receipt Date: 20190225
  Transmission Date: 20190418
  Serious: Yes (Hospitalization, Disabling, Other)
  Sender: FDA-Public Use
  Company Number: NO-ABBVIE-19K-122-2674647-00

PATIENT
  Sex: Female

DRUGS (3)
  1. NEXIUM [Concomitant]
     Active Substance: ESOMEPRAZOLE MAGNESIUM
     Indication: PRODUCT USED FOR UNKNOWN INDICATION
  2. HUMIRA [Suspect]
     Active Substance: ADALIMUMAB
     Indication: CROHN^S DISEASE
     Route: 058
     Dates: start: 20131201, end: 20180501
  3. HUMIRA [Suspect]
     Active Substance: ADALIMUMAB
     Indication: ANKYLOSING SPONDYLITIS
     Route: 058
     Dates: start: 20131201, end: 20180501

REACTIONS (5)
  - Hypoaesthesia [Unknown]
  - Memory impairment [Unknown]
  - Multiple sclerosis [Recovering/Resolving]
  - Multiple sclerosis [Unknown]
  - Optic nerve disorder [Recovering/Resolving]

NARRATIVE: CASE EVENT DATE: 2017
